FAERS Safety Report 7102713-X (Version None)
Quarter: 2010Q4

REPORT INFORMATION
  Report Type: 
  Country: None (occurrence: None)
  Receive Date: 20101115
  Receipt Date: 20101101
  Transmission Date: 20110411
  Serious: Yes (Hospitalization, Other)
  Sender: FDA-Public Use
  Company Number: PHEH2007US07935

PATIENT
  Sex: Female
  Weight: 41.723 kg

DRUGS (15)
  1. FEMARA [Suspect]
     Indication: BREAST CANCER
     Dosage: 2.5 MG, QD
     Route: 048
     Dates: start: 20061101
  2. FEMARA [Suspect]
     Dosage: UNK
     Dates: start: 20061201
  3. RECLAST [Suspect]
     Indication: OSTEOPENIA
     Dosage: UNK
     Dates: start: 20080601
  4. LABETALOL HCL [Concomitant]
     Indication: HYPERTENSION
  5. HYZAAR [Concomitant]
     Indication: HYPERTENSION
  6. K-DUR [Concomitant]
  7. ALLEGRA [Concomitant]
  8. CELEBREX [Concomitant]
  9. ZOCOR [Concomitant]
  10. DILAUDID [Concomitant]
  11. ZANAFLEX [Concomitant]
  12. VITAMIN D3 [Concomitant]
  13. CALTRATE +D [Concomitant]
  14. CENTRUM SILVER [Concomitant]
  15. PHYSICAL THERAPY [Concomitant]

REACTIONS (13)
  - BONE DENSITY DECREASED [None]
  - BONE MARROW OEDEMA [None]
  - BONE PAIN [None]
  - FATIGUE [None]
  - OEDEMA [None]
  - PELVIC FRACTURE [None]
  - PYREXIA [None]
  - SPINAL FUSION SURGERY [None]
  - SPINAL LAMINECTOMY [None]
  - STRESS FRACTURE [None]
  - SURGERY [None]
  - VULVOVAGINAL DRYNESS [None]
  - WEIGHT DECREASED [None]
